FAERS Safety Report 18119570 (Version 2)
Quarter: 2020Q4

REPORT INFORMATION
  Report Type: Spontaneous
  Country: PT (occurrence: PT)
  Receive Date: 20200806
  Receipt Date: 20201118
  Transmission Date: 20210113
  Serious: Yes (Other)
  Sender: FDA-Public Use
  Company Number: PT-ASPEN-GLO2016PT004801

PATIENT

DRUGS (11)
  1. DEXAMETHASONE. [Suspect]
     Active Substance: DEXAMETHASONE
     Indication: ACUTE LEUKAEMIA
     Dosage: 40MG, CYCLICAL (DAYS 1 TO 4 AND DAYS 11 TO 14)
     Route: 065
     Dates: start: 201305, end: 201311
  2. CYTARABINE. [Suspect]
     Active Substance: CYTARABINE
     Dosage: 100 MG, CYCLICAL (DAYS 7 OR 8)
     Route: 037
     Dates: start: 201305, end: 201311
  3. FOLINIC ACID [Suspect]
     Active Substance: LEUCOVORIN
     Indication: ACUTE LEUKAEMIA
     Route: 065
  4. CYTARABINE. [Suspect]
     Active Substance: CYTARABINE
     Indication: ACUTE LEUKAEMIA
     Dosage: 3000 MG/M2, CYCLICAL (12/12H, DAYS 2 AND 3)
     Route: 065
     Dates: start: 201305, end: 201311
  5. METHOTREXATE. [Suspect]
     Active Substance: METHOTREXATE
     Indication: ACUTE LEUKAEMIA
     Dosage: 1000MG/M2 (DAY 1), CYCLICAL
     Route: 065
     Dates: start: 201305, end: 201311
  6. MESNA. [Suspect]
     Active Substance: MESNA
     Indication: ACUTE LEUKAEMIA
     Dosage: 600 MG/M2, CYCLICAL (DAYS 1 TO 3)
     Route: 065
     Dates: start: 201305, end: 201311
  7. METHYLPREDNISOLONE. [Suspect]
     Active Substance: METHYLPREDNISOLONE
     Indication: ACUTE LEUKAEMIA
     Route: 065
  8. DOXORUBICIN [Suspect]
     Active Substance: DOXORUBICIN
     Indication: ACUTE LEUKAEMIA
     Dosage: 50 MG/M2, CYCLICAL (DAYS 4 )
     Route: 065
     Dates: start: 201305, end: 201311
  9. METHOTREXATE. [Suspect]
     Active Substance: METHOTREXATE
     Dosage: 12MG, (DAY 2) IN CYCLES
     Route: 037
     Dates: start: 201305, end: 201311
  10. CYCLOPHOSPHAMIDE. [Suspect]
     Active Substance: CYCLOPHOSPHAMIDE
     Indication: ACUTE LEUKAEMIA
     Dosage: 300 MG/M2, CYCLICAL (12/12H, DAYS 1 TO 3 2 IN 1 D)
     Route: 065
     Dates: start: 201305, end: 201311
  11. VINCRISTINE [Suspect]
     Active Substance: VINCRISTINE
     Indication: ACUTE LEUKAEMIA
     Dosage: 2 MG, CYCLICAL (DAYS 4 AND 11)
     Route: 065
     Dates: start: 201305, end: 201311

REACTIONS (5)
  - Mucosal inflammation [Unknown]
  - Off label use [Unknown]
  - Febrile neutropenia [Unknown]
  - Neoplasm recurrence [Unknown]
  - Product use in unapproved indication [Unknown]

NARRATIVE: CASE EVENT DATE: 2013
